FAERS Safety Report 5286130-3 (Version None)
Quarter: 2007Q2

REPORT INFORMATION
  Report Type: 
  Country: None (occurrence: None)
  Receive Date: 20070404
  Receipt Date: 20070328
  Transmission Date: 20071010
  Serious: Yes (Disabling)
  Sender: FDA-Public Use
  Company Number: JP-AVENTIS-200710214JP

PATIENT
  Age: 47 Year
  Sex: Female
  Weight: 49 kg

DRUGS (7)
  1. TAXOTERE [Suspect]
     Indication: BREAST CANCER STAGE II
     Route: 041
     Dates: start: 20060815, end: 20060815
  2. TAXOTERE [Suspect]
     Route: 041
     Dates: start: 20060907, end: 20061019
  3. ENDOXAN [Suspect]
     Indication: BREAST CANCER STAGE II
     Route: 042
     Dates: start: 20060511, end: 20060720
  4. FARMORUBICIN                       /00699301/ [Concomitant]
     Indication: BREAST CANCER STAGE II
     Route: 042
     Dates: start: 20060511, end: 20060720
  5. FLUOROURACIL [Concomitant]
     Indication: BREAST CANCER STAGE II
     Route: 042
     Dates: start: 20060511, end: 20060720
  6. DECADRON [Concomitant]
     Indication: PREMEDICATION
     Dates: start: 20060815, end: 20060815
  7. DECADRON [Concomitant]
     Dates: start: 20060907, end: 20061019

REACTIONS (1)
  - ARTHRITIS [None]
